FAERS Safety Report 12650034 (Version 1)
Quarter: 2016Q3

REPORT INFORMATION
  Report Type: Spontaneous
  Country: GB (occurrence: GB)
  Receive Date: 20160813
  Receipt Date: 20160813
  Transmission Date: 20161109
  Serious: Yes (Hospitalization, Other)
  Sender: FDA-Public Use
  Company Number: GB-ACCORD-043220

PATIENT
  Age: 76 Year
  Sex: Male
  Weight: 82 kg

DRUGS (14)
  1. TAMOXIFEN [Concomitant]
     Active Substance: TAMOXIFEN
     Dates: start: 20151221
  2. WARFARIN [Concomitant]
     Active Substance: WARFARIN
     Dates: start: 20151221
  3. ACICLOVIR [Concomitant]
     Active Substance: ACYCLOVIR
     Dosage: DISPERSED IN WATER
     Dates: start: 20151221
  4. CALCIUM CARBONATE. [Concomitant]
     Active Substance: CALCIUM CARBONATE
     Dates: start: 20151221
  5. TRIMETHOPRIM/TRIMETHOPRIM LACTATE/TRIMETHOPRIM SULFATE [Concomitant]
     Dates: start: 20160628, end: 20160701
  6. ASACOL [Concomitant]
     Active Substance: MESALAMINE
     Dates: start: 20160321
  7. BICALUTAMIDE. [Concomitant]
     Active Substance: BICALUTAMIDE
     Dates: start: 20151221
  8. BUDESONIDE. [Concomitant]
     Active Substance: BUDESONIDE
     Dosage: AS DIRECTED BY HOSPITAL
     Dates: start: 20151223, end: 20160526
  9. FUROSEMIDE. [Concomitant]
     Active Substance: FUROSEMIDE
     Dosage: EACH MORNING
     Dates: start: 20160606
  10. SOLIFENACIN/SOLIFENACIN SUCCINATE [Concomitant]
     Dates: start: 20151221
  11. RAMIPRIL. [Suspect]
     Active Substance: RAMIPRIL
     Indication: PRODUCT USED FOR UNKNOWN INDICATION
     Dosage: DOSE WAS INCREASED TO 10 MG FROM 5 MG
     Dates: start: 20160630
  12. BISOPROLOL [Concomitant]
     Active Substance: BISOPROLOL
     Dates: start: 20160606
  13. DIGOXIN. [Concomitant]
     Active Substance: DIGOXIN
     Dates: start: 20151221
  14. NITROFURANTOIN/NITROFURANTOIN SODIUM [Concomitant]
     Dosage: 1/2 A TABLET
     Dates: start: 20160630, end: 20160707

REACTIONS (2)
  - Oropharyngeal swelling [Recovering/Resolving]
  - Oropharyngeal pain [Unknown]

NARRATIVE: CASE EVENT DATE: 20160725
